FAERS Safety Report 11429704 (Version 1)
Quarter: 2015Q3

REPORT INFORMATION
  Report Type: Spontaneous
  Country: US (occurrence: US)
  Receive Date: 20150828
  Receipt Date: 20150828
  Transmission Date: 20151125
  Serious: Yes (Disabling, Other)
  Sender: FDA-Public Use
  Company Number: PHEH2014US023979

PATIENT
  Age: 75 Year
  Sex: Female
  Weight: 67.13 kg

DRUGS (2)
  1. RECLAST [Suspect]
     Active Substance: ZOLEDRONIC ACID
     Indication: OSTEOPOROSIS
     Dosage: 5 MG, ONCE A YEAR
     Route: 042
  2. RECLAST [Suspect]
     Active Substance: ZOLEDRONIC ACID
     Dosage: 5 MG, ONCE A YEAR
     Route: 042
     Dates: start: 20140512

REACTIONS (5)
  - Hypertension [Recovering/Resolving]
  - Anxiety [Unknown]
  - Headache [Unknown]
  - Alopecia [Not Recovered/Not Resolved]
  - Dizziness [Unknown]

NARRATIVE: CASE EVENT DATE: 20140512
